FAERS Safety Report 9549868 (Version 1)
Quarter: 2013Q3

REPORT INFORMATION
  Report Type: Spontaneous
  Country: US (occurrence: US)
  Receive Date: 20130924
  Receipt Date: 20130924
  Transmission Date: 20140515
  Serious: Yes (Death, Other)
  Sender: FDA-Public Use
  Company Number: US-ACTAVIS-2013-16626

PATIENT
  Age: 42 Year
  Sex: Female

DRUGS (3)
  1. CYPROHEPTADINE HYDROCHLORIDE (AMALLC) [Suspect]
     Indication: OVERDOSE
     Dosage: UNK
     Route: 065
  2. CITALOPRAM HYDROBROMIDE (WATSON LABORATORIES) [Interacting]
     Indication: OVERDOSE
     Dosage: UNK
     Route: 065
  3. LEXAPRO [Interacting]
     Indication: OVERDOSE
     Dosage: UNK
     Route: 065

REACTIONS (3)
  - Toxicity to various agents [Fatal]
  - Overdose [Fatal]
  - Drug interaction [Unknown]
